FAERS Safety Report 6613061-6 (Version None)
Quarter: 2010Q1

REPORT INFORMATION
  Report Type: 
  Country: None (occurrence: None)
  Receive Date: 20100304
  Receipt Date: 20100222
  Transmission Date: 20100710
  Serious: Yes (Congenital Anomaly)
  Sender: FDA-Public Use
  Company Number: GB-BIOGENIDEC-2010BI003790

PATIENT

DRUGS (5)
  1. TYSABRI [Suspect]
     Route: 064
     Dates: start: 20090309, end: 20091001
  2. TYSABRI [Suspect]
     Route: 064
     Dates: start: 20090309, end: 20091001
  3. TYSABRI [Suspect]
     Route: 064
     Dates: start: 20090309, end: 20091001
  4. TYSABRI [Suspect]
     Route: 064
     Dates: start: 20090309, end: 20091001
  5. VITAMIN B-12 [Concomitant]
     Route: 064

REACTIONS (1)
  - DANDY-WALKER SYNDROME [None]
